FAERS Safety Report 10243438 (Version 1)
Quarter: 2014Q2

REPORT INFORMATION
  Report Type: Spontaneous
  Country: US (occurrence: None)
  Receive Date: 20140616
  Receipt Date: 20140616
  Transmission Date: 20141212
  Serious: Yes (Hospitalization)
  Sender: FDA-Public Use
  Company Number: None

PATIENT
  Age: 79 Year
  Sex: Male
  Weight: 75 kg

DRUGS (9)
  1. LEUPROLIDE ACETATE [Suspect]
  2. ACTONEL [Concomitant]
  3. CRESTOR [Concomitant]
  4. FLOMAX [Concomitant]
  5. METHOTREXATE [Concomitant]
  6. PANTOPRAZOLE [Concomitant]
  7. PRADAXA [Concomitant]
  8. SYNTHYROID [Concomitant]
  9. VITAMIN D [Concomitant]

REACTIONS (5)
  - Pain in extremity [None]
  - Spinal column stenosis [None]
  - Rectal haemorrhage [None]
  - Inflammation [None]
  - Transient ischaemic attack [None]
